FAERS Safety Report 5924800-1 (Version None)
Quarter: 2008Q4

REPORT INFORMATION
  Report Type: 
  Country: None (occurrence: None)
  Receive Date: 20081017
  Receipt Date: 20081017
  Transmission Date: 20090506
  Serious: Yes (Hospitalization)
  Sender: FDA-Public Use
  Company Number: None

PATIENT
  Sex: Male
  Weight: 66 kg

DRUGS (3)
  1. CISPLATIN [Suspect]
     Indication: NEOPLASM MALIGNANT
     Dosage: 100MG/M2 IV Q21DAY
     Route: 042
     Dates: start: 20080929
  2. CISPLATIN [Suspect]
     Indication: SINUS DISORDER
     Dosage: 100MG/M2 IV Q21DAY
     Route: 042
     Dates: start: 20080929
  3. CETUXIMAB [Suspect]
     Indication: SINUS DISORDER
     Dosage: 250MG/M2 IV QWEEK
     Route: 042
     Dates: start: 20080813

REACTIONS (2)
  - ANOREXIA [None]
  - HYPOPHAGIA [None]
